FAERS Safety Report 4521171-2 (Version None)
Quarter: 2004Q4

REPORT INFORMATION
  Report Type: 
  Country: None (occurrence: None)
  Receive Date: 20041208
  Receipt Date: 20041018
  Transmission Date: 20050328
  Serious: Yes (Hospitalization, Disabling)
  Sender: FDA-Public Use
  Company Number: DE-MERCK-0410DEU00533

PATIENT
  Age: 66 Year
  Sex: Male
  Weight: 86 kg

DRUGS (6)
  1. VIOXX [Suspect]
     Indication: POLYARTHRITIS
     Route: 048
     Dates: start: 20030521, end: 20030101
  2. VIOXX [Suspect]
     Route: 048
     Dates: start: 20030618, end: 20040810
  3. VIOXX [Suspect]
     Indication: LOCALISED OSTEOARTHRITIS
     Route: 048
     Dates: start: 20030521, end: 20030101
  4. VIOXX [Suspect]
     Route: 048
     Dates: start: 20030618, end: 20040810
  5. CAPTOPRIL AND HYDROCHLOROTHIAZIDE [Concomitant]
     Indication: HYPERTENSION
     Route: 048
     Dates: start: 20000804, end: 20041014
  6. DILTIAZEM HYDROCHLORIDE [Concomitant]
     Indication: HYPERTENSION
     Route: 048
     Dates: start: 19981105, end: 20041014

REACTIONS (13)
  - ARRHYTHMIA SUPRAVENTRICULAR [None]
  - BACK PAIN [None]
  - CEREBROVASCULAR ACCIDENT [None]
  - CHRONIC OBSTRUCTIVE AIRWAYS DISEASE [None]
  - GAIT DISTURBANCE [None]
  - INNER EAR DISORDER [None]
  - LARYNGEAL OEDEMA [None]
  - LOCALISED OSTEOARTHRITIS [None]
  - MYOCARDIAL ISCHAEMIA [None]
  - SPEECH DISORDER [None]
  - SYNCOPE [None]
  - VASCULAR ENCEPHALOPATHY [None]
  - VOCAL CORD NEOPLASM [None]
